FAERS Safety Report 8042406-8 (Version None)
Quarter: 2012Q1

REPORT INFORMATION
  Report Type: 
  Country: None (occurrence: None)
  Receive Date: 20120112
  Receipt Date: 20120105
  Transmission Date: 20120608
  Serious: Yes (Hospitalization)
  Sender: FDA-Public Use
  Company Number: FR-NOVOPROD-342668

PATIENT

DRUGS (1)
  1. NOVOLOG MIX 70/30 [Suspect]
     Indication: DIABETES MELLITUS
     Dosage: UK
     Route: 065
     Dates: end: 20111201

REACTIONS (4)
  - PAIN [None]
  - HYPERSENSITIVITY [None]
  - DYSPNOEA [None]
  - LETHARGY [None]
